FAERS Safety Report 21353450 (Version 1)
Quarter: 2022Q3

REPORT INFORMATION
  Report Type: Spontaneous
  Country: CA (occurrence: CA)
  Receive Date: 20220920
  Receipt Date: 20220920
  Transmission Date: 20221026
  Serious: No
  Sender: FDA-Public Use
  Company Number: CA-ALKEM LABORATORIES LIMITED-CA-ALKEM-2022-07581

PATIENT
  Age: 37 Year
  Sex: Male

DRUGS (3)
  1. SILDENAFIL [Suspect]
     Active Substance: SILDENAFIL
     Indication: Rehabilitation therapy
     Dosage: PARTIAL TABLET
     Route: 065
  2. TADALAFIL [Suspect]
     Active Substance: TADALAFIL
     Indication: Rehabilitation therapy
     Dosage: PARTIAL TABLET
     Route: 065
  3. TADALAFIL [Suspect]
     Active Substance: TADALAFIL
     Dosage: 5 MILLIGRAM TABLET (SINGLE TABLET)
     Route: 065

REACTIONS (1)
  - Fixed eruption [Recovered/Resolved]
